FAERS Safety Report 21066977 (Version 1)
Quarter: 2022Q3

REPORT INFORMATION
  Report Type: Report from Study
  Country: US (occurrence: None)
  Receive Date: 20220712
  Receipt Date: 20220712
  Transmission Date: 20221027
  Serious: Yes (Hospitalization)
  Sender: FDA-Public Use
  Company Number: US-ROCHE-3130401

PATIENT

DRUGS (4)
  1. ATEZOLIZUMAB [Suspect]
     Active Substance: ATEZOLIZUMAB
     Indication: Plasma cell myeloma
     Dosage: DATE OF MOST RECENT DOSE OF STUDY DRUG: 05/MAY/2022
     Route: 041
     Dates: start: 20220325
  2. TALAZOPARIB [Suspect]
     Active Substance: TALAZOPARIB
     Indication: Plasma cell myeloma
     Dosage: DATE OF MOST RECENT DOSE OF STUDY DRUG: 05/MAY/2022
     Route: 048
     Dates: start: 20220325
  3. SOLU-MEDROL [Concomitant]
     Active Substance: METHYLPREDNISOLONE SODIUM SUCCINATE
     Route: 042
  4. PREDNISONE [Concomitant]
     Active Substance: PREDNISONE

REACTIONS (1)
  - Muscular weakness [Recovered/Resolved]

NARRATIVE: CASE EVENT DATE: 20220520
